FAERS Safety Report 6305213-X (Version None)
Quarter: 2009Q3

REPORT INFORMATION
  Report Type: 
  Country: None (occurrence: None)
  Receive Date: 20090810
  Receipt Date: 20090810
  Transmission Date: 20100115
  Serious: Yes (Hospitalization)
  Sender: FDA-Public Use
  Company Number: None

PATIENT
  Age: 50 Year
  Sex: Male
  Weight: 87.5 kg

DRUGS (2)
  1. CETUXIMAB 400MG/M2 [Suspect]
     Dosage: 800MG X 1, IV
     Route: 042
     Dates: start: 20090803
  2. CARBOPLATIN [Suspect]
     Dosage: 870 MG X 1, IV
     Route: 042
     Dates: start: 20090803

REACTIONS (3)
  - BLOOD BILIRUBIN INCREASED [None]
  - CHOLECYSTITIS [None]
  - PYREXIA [None]
